FAERS Safety Report 18868097 (Version 2)
Quarter: 2021Q1

REPORT INFORMATION
  Report Type: Report from Study
  Country: JP (occurrence: JP)
  Receive Date: 20210209
  Receipt Date: 20210211
  Transmission Date: 20210420
  Serious: Yes (Death)
  Sender: FDA-Public Use
  Company Number: JP-JNJFOC-20210214995

PATIENT
  Age: 77 Year
  Sex: Male
  Weight: 50 kg

DRUGS (16)
  1. VELCADE [Suspect]
     Active Substance: BORTEZOMIB
     Indication: PLASMA CELL MYELOMA
     Route: 065
     Dates: start: 20180309, end: 20180309
  2. DARZALEX [Suspect]
     Active Substance: DARATUMUMAB
     Indication: PLASMA CELL MYELOMA
     Route: 041
     Dates: start: 20180227, end: 20180227
  3. DARZALEX [Suspect]
     Active Substance: DARATUMUMAB
     Route: 041
     Dates: start: 20180313, end: 20180313
  4. MEROPENEM. [Concomitant]
     Active Substance: MEROPENEM
     Indication: PNEUMONIA STAPHYLOCOCCAL
     Route: 065
     Dates: start: 20180302, end: 20180308
  5. PIPERACILLIN NA [Concomitant]
     Indication: NEUTROPHIL COUNT DECREASED
     Route: 065
     Dates: start: 20180309, end: 20180309
  6. FUROSEMIDE. [Concomitant]
     Active Substance: FUROSEMIDE
     Indication: ILEUS PARALYTIC
     Route: 065
     Dates: start: 20180322, end: 20180324
  7. VELCADE [Suspect]
     Active Substance: BORTEZOMIB
     Indication: PLASMA CELL MYELOMA
     Route: 065
     Dates: start: 20180227, end: 20180227
  8. VELCADE [Suspect]
     Active Substance: BORTEZOMIB
     Indication: PLASMA CELL MYELOMA
     Route: 065
     Dates: start: 20180302, end: 20180302
  9. NORADRENALINE [Concomitant]
     Active Substance: NOREPINEPHRINE
     Indication: SEPTIC SHOCK
     Route: 065
     Dates: start: 20180316, end: 20180320
  10. VELCADE [Suspect]
     Active Substance: BORTEZOMIB
     Indication: PLASMA CELL MYELOMA
     Route: 065
     Dates: start: 20180306, end: 20180306
  11. PIPERACILLIN NA [Concomitant]
     Indication: NEUTROPHIL COUNT DECREASED
     Route: 065
     Dates: start: 20180310, end: 20180315
  12. OMEGACIN [Concomitant]
     Active Substance: BIAPENEM
     Indication: PNEUMONIA STAPHYLOCOCCAL
     Route: 065
     Dates: start: 20180316, end: 20180325
  13. DARZALEX [Suspect]
     Active Substance: DARATUMUMAB
     Route: 041
     Dates: start: 20180306, end: 20180306
  14. NEU?UP [Concomitant]
     Active Substance: UNSPECIFIED INGREDIENT
     Indication: PYREXIA
     Route: 065
     Dates: start: 20180309, end: 20180324
  15. LINEZOLID. [Concomitant]
     Active Substance: LINEZOLID
     Indication: PNEUMONIA STAPHYLOCOCCAL
     Route: 065
     Dates: start: 20180302, end: 20180315
  16. FUROSEMIDE. [Concomitant]
     Active Substance: FUROSEMIDE
     Indication: ILEUS PARALYTIC
     Route: 065
     Dates: start: 20180315, end: 20180321

REACTIONS (7)
  - Neutrophil count decreased [Not Recovered/Not Resolved]
  - Pyrexia [Not Recovered/Not Resolved]
  - Pneumonia staphylococcal [Not Recovered/Not Resolved]
  - Plasma cell myeloma [Fatal]
  - Infusion related reaction [Not Recovered/Not Resolved]
  - Ileus paralytic [Recovering/Resolving]
  - Septic shock [Fatal]

NARRATIVE: CASE EVENT DATE: 20180302
